FAERS Safety Report 25577549 (Version 1)
Quarter: 2025Q3

REPORT INFORMATION
  Report Type: Spontaneous
  Country: US (occurrence: US)
  Receive Date: 20250718
  Receipt Date: 20250718
  Transmission Date: 20251020
  Serious: No
  Sender: INSUD PHARMA
  Company Number: US-INSUD PHARMA-2507US05765

PATIENT

DRUGS (2)
  1. SLYND [Suspect]
     Active Substance: DROSPIRENONE
     Indication: Polycystic ovarian syndrome
     Route: 048
     Dates: start: 2025
  2. SLYND [Suspect]
     Active Substance: DROSPIRENONE
     Indication: Endometriosis

REACTIONS (4)
  - Menstruation delayed [Unknown]
  - Intermenstrual bleeding [Unknown]
  - Dysmenorrhoea [Recovered/Resolved]
  - Product use in unapproved indication [Unknown]

NARRATIVE: CASE EVENT DATE: 20250101
